FAERS Safety Report 6838820-6 (Version None)
Quarter: 2010Q3

REPORT INFORMATION
  Report Type: 
  Country: None (occurrence: None)
  Receive Date: 20100709
  Receipt Date: 20100623
  Transmission Date: 20110219
  Serious: Yes (Hospitalization)
  Sender: FDA-Public Use
  Company Number: 1000014119

PATIENT
  Age: 47 Year
  Sex: Female

DRUGS (2)
  1. ESCITALOPRAM [Suspect]
     Indication: DEPRESSION
     Dosage: 14 TABLETS ONCE, ORAL 10 MG (10 MG, 1 IN 1 D) ORAL
     Route: 048
     Dates: start: 20100316, end: 20100316
  2. TRUXOL [Concomitant]

REACTIONS (6)
  - BLOOD CREATINE PHOSPHOKINASE INCREASED [None]
  - BRONCHITIS [None]
  - CONFUSIONAL STATE [None]
  - DRUG ABUSE [None]
  - INTENTIONAL OVERDOSE [None]
  - SOMNOLENCE [None]
